FAERS Safety Report 6854985-4 (Version None)
Quarter: 2010Q3

REPORT INFORMATION
  Report Type: 
  Country: None (occurrence: None)
  Receive Date: 20100717
  Receipt Date: 20080430
  Transmission Date: 20110219
  Serious: No
  Sender: FDA-Public Use
  Company Number: US-PFIZER INC-2008003333

PATIENT
  Sex: Female
  Weight: 54.4 kg

DRUGS (2)
  1. CHANTIX [Suspect]
     Dates: start: 20080106
  2. REMIFEMIN [Concomitant]

REACTIONS (6)
  - CHEST DISCOMFORT [None]
  - DRUG INTOLERANCE [None]
  - DYSPNOEA [None]
  - GASTROOESOPHAGEAL REFLUX DISEASE [None]
  - HEADACHE [None]
  - INFECTION [None]
